FAERS Safety Report 11964275 (Version 2)
Quarter: 2016Q1

REPORT INFORMATION
  Report Type: Report from Study
  Country: US (occurrence: US)
  Receive Date: 20160126
  Receipt Date: 20160202
  Transmission Date: 20160526
  Serious: No
  Sender: FDA-Public Use
  Company Number: US-ABBVIE-15K-163-1377256-00

PATIENT
  Age: 74 Year
  Sex: Female

DRUGS (1)
  1. HUMIRA [Suspect]
     Active Substance: ADALIMUMAB
     Indication: COLITIS ULCERATIVE
     Route: 065
     Dates: start: 20141023

REACTIONS (4)
  - Pharyngeal ulceration [Not Recovered/Not Resolved]
  - Pharyngeal ulceration [Recovered/Resolved]
  - Hypophagia [Unknown]
  - Dysphagia [Unknown]

NARRATIVE: CASE EVENT DATE: 201504
